FAERS Safety Report 7980958-4 (Version None)
Quarter: 2011Q4

REPORT INFORMATION
  Report Type: 
  Country: None (occurrence: None)
  Receive Date: 20111215
  Receipt Date: 20111207
  Transmission Date: 20120403
  Serious: No
  Sender: FDA-Public Use
  Company Number: US-BIOGENIDEC-2011BI046497

PATIENT
  Age: 42 Year
  Sex: Female

DRUGS (2)
  1. AVONEX [Suspect]
     Indication: MULTIPLE SCLEROSIS
     Route: 030
     Dates: start: 20111031
  2. TRAZODONE HCL [Concomitant]
     Indication: DEPRESSION

REACTIONS (5)
  - ANXIETY [None]
  - INSOMNIA [None]
  - URINARY INCONTINENCE [None]
  - AMNESIA [None]
  - CONFUSIONAL STATE [None]
